FAERS Safety Report 19880301 (Version 1)
Quarter: 2021Q3

REPORT INFORMATION
  Report Type: Report from Study
  Country: None (occurrence: JP)
  Receive Date: 20210925
  Receipt Date: 20210925
  Transmission Date: 20211014
  Serious: Yes (Life-Threatening, Hospitalization, Disabling, Other)
  Sender: FDA-Public Use
  Company Number: JP-ABBVIE-21K-087-4094643-00

PATIENT
  Age: 4 Year
  Sex: Male
  Weight: 10.1 kg

DRUGS (8)
  1. SABRIL [Suspect]
     Active Substance: VIGABATRIN
     Dosage: BID
     Route: 048
     Dates: start: 20180629, end: 20180702
  2. SABRIL [Suspect]
     Active Substance: VIGABATRIN
     Dosage: BID
     Route: 048
     Dates: start: 20180703
  3. SABRIL [Suspect]
     Active Substance: VIGABATRIN
     Indication: INFANTILE SPASMS
     Dosage: 250MG, BID
     Route: 048
     Dates: start: 20180615, end: 20180628
  4. LEVETIRACETAM. [Suspect]
     Active Substance: LEVETIRACETAM
     Indication: PRODUCT USED FOR UNKNOWN INDICATION
     Route: 065
  5. VALPROATE SODIUM. [Suspect]
     Active Substance: VALPROATE SODIUM
     Indication: PRODUCT USED FOR UNKNOWN INDICATION
     Route: 065
  6. PHENOBARBITAL. [Suspect]
     Active Substance: PHENOBARBITAL
     Indication: PRODUCT USED FOR UNKNOWN INDICATION
     Route: 065
  7. L CARTIN [Suspect]
     Active Substance: LEVOCARNITINE HYDROCHLORIDE
     Indication: PRODUCT USED FOR UNKNOWN INDICATION
     Route: 065
  8. ONON [Suspect]
     Active Substance: PRANLUKAST
     Indication: PRODUCT USED FOR UNKNOWN INDICATION
     Route: 065

REACTIONS (3)
  - Respiratory failure [Recovered/Resolved with Sequelae]
  - Seizure [Recovered/Resolved]
  - Pyrexia [Recovering/Resolving]

NARRATIVE: CASE EVENT DATE: 2018
